FAERS Safety Report 4886646-5 (Version None)
Quarter: 2006Q1

REPORT INFORMATION
  Report Type: 
  Country: None (occurrence: None)
  Receive Date: 20060120
  Receipt Date: 20060110
  Transmission Date: 20060701
  Serious: Yes (Other)
  Sender: FDA-Public Use
  Company Number: TH-BRISTOL-MYERS SQUIBB COMPANY-13250238

PATIENT
  Age: 24 Month
  Sex: Female

DRUGS (3)
  1. EFAVIRENZ [Suspect]
     Indication: HIV INFECTION
     Dates: start: 20020101
  2. STAVUDINE [Concomitant]
     Indication: HIV INFECTION
     Dates: start: 20020101
  3. LAMIVUDINE [Concomitant]
     Indication: HIV INFECTION
     Dates: start: 20020101

REACTIONS (2)
  - GUILLAIN-BARRE SYNDROME [None]
  - IMMUNE RECONSTITUTION SYNDROME [None]
